FAERS Safety Report 11617595 (Version 1)
Quarter: 2015Q4

REPORT INFORMATION
  Report Type: Spontaneous
  Country: US (occurrence: US)
  Receive Date: 20151009
  Receipt Date: 20151009
  Transmission Date: 20160304
  Serious: Yes (Hospitalization, Other)
  Sender: FDA-Public Use
  Company Number: US-ELI_LILLY_AND_COMPANY-US201509008787

PATIENT
  Age: 72 Year
  Sex: Female

DRUGS (22)
  1. GEMZAR [Suspect]
     Active Substance: GEMCITABINE HYDROCHLORIDE
     Dosage: 1720 MG, CYCLICAL
     Route: 042
     Dates: start: 20130724, end: 20131104
  2. SALINE                             /00075401/ [Concomitant]
     Active Substance: SODIUM CHLORIDE
     Indication: PRODUCT USED FOR UNKNOWN INDICATION
     Dosage: 10 ML, UNKNOWN
     Route: 065
     Dates: start: 20110420, end: 20150914
  3. RESTORIL                           /00393701/ [Concomitant]
     Indication: PRODUCT USED FOR UNKNOWN INDICATION
     Dosage: 30 MG, QD
     Route: 048
     Dates: end: 20120118
  4. IBRANCE [Suspect]
     Active Substance: PALBOCICLIB
     Indication: PRODUCT USED FOR UNKNOWN INDICATION
     Dosage: 100 MG, QD
     Route: 048
  5. HEPARIN [Suspect]
     Active Substance: HEPARIN SODIUM
     Indication: PRODUCT USED FOR UNKNOWN INDICATION
     Dosage: UNK, UNKNOWN
     Route: 065
  6. HERCEPTIN [Suspect]
     Active Substance: TRASTUZUMAB
     Indication: BREAST CANCER
     Dosage: 400 MG, CYCLICAL
     Route: 042
     Dates: start: 20120830, end: 20150914
  7. SERTRALINE HYDROCHLORIDE. [Concomitant]
     Active Substance: SERTRALINE HYDROCHLORIDE
     Indication: PRODUCT USED FOR UNKNOWN INDICATION
     Dosage: 50 MG, QD
     Route: 048
     Dates: end: 20131104
  8. ONDANSETRON [Concomitant]
     Active Substance: ONDANSETRON
     Dosage: UNK
     Dates: start: 20110404
  9. ACETAMINOPHEN. [Concomitant]
     Active Substance: ACETAMINOPHEN
     Indication: PRODUCT USED FOR UNKNOWN INDICATION
     Dosage: 325 MG, UNKNOWN
     Route: 048
     Dates: start: 20110404, end: 20150217
  10. TYKERB [Concomitant]
     Active Substance: LAPATINIB DITOSYLATE
     Indication: PRODUCT USED FOR UNKNOWN INDICATION
     Dosage: UNK
     Dates: end: 20131216
  11. DEXAMETHASONE SODIUM PHOSPHATE. [Concomitant]
     Active Substance: DEXAMETHASONE SODIUM PHOSPHATE
     Indication: PRODUCT USED FOR UNKNOWN INDICATION
     Dosage: 8 MG, QD
     Route: 042
     Dates: start: 20130827, end: 20131104
  12. LASIX [Concomitant]
     Active Substance: FUROSEMIDE
     Indication: PRODUCT USED FOR UNKNOWN INDICATION
     Dosage: 40 MG, EACH MORNING
     Route: 048
     Dates: end: 20120222
  13. SODIUM CHLORIDE. [Concomitant]
     Active Substance: SODIUM CHLORIDE
     Indication: PRODUCT USED FOR UNKNOWN INDICATION
     Dosage: 500 ML, UNKNOWN
     Route: 042
     Dates: start: 20130401, end: 20140818
  14. GUAIFENESIN. [Concomitant]
     Active Substance: GUAIFENESIN
     Indication: PRODUCT USED FOR UNKNOWN INDICATION
     Dosage: UNK, UNKNOWN
     Route: 065
     Dates: end: 20120118
  15. TRIAMTERENE AND HYDROCHLOROTHIAZIDE [Concomitant]
     Active Substance: HYDROCHLOROTHIAZIDE\TRIAMTERENE
     Indication: PRODUCT USED FOR UNKNOWN INDICATION
     Dosage: UNK, OTHER (37.5-25MG, DAILY)
     Route: 048
     Dates: start: 20120328, end: 20120516
  16. METOPROLOL SUCCINATE. [Concomitant]
     Active Substance: METOPROLOL SUCCINATE
     Dosage: 50 MG, QD
     Route: 048
     Dates: start: 20130326
  17. AROMASIN [Suspect]
     Active Substance: EXEMESTANE
     Indication: PRODUCT USED FOR UNKNOWN INDICATION
     Dosage: 25 MG, QD
     Route: 048
  18. POTASSIUM [Concomitant]
     Active Substance: POTASSIUM
     Indication: PRODUCT USED FOR UNKNOWN INDICATION
     Dosage: 10 MEQ, EACH MORNING
     Route: 048
     Dates: end: 20120222
  19. PHENERGAN [Concomitant]
     Active Substance: PROMETHAZINE HYDROCHLORIDE
     Indication: PRODUCT USED FOR UNKNOWN INDICATION
     Dosage: 12.5 MG, PRN
     Route: 042
     Dates: start: 20110413, end: 20130626
  20. GEMZAR [Suspect]
     Active Substance: GEMCITABINE HYDROCHLORIDE
     Indication: BREAST CANCER
     Dosage: 889 MG/M2, CYCLICAL
     Route: 042
     Dates: start: 20120118, end: 20120509
  21. OXYCODONE AND ACETAMINOPHEN [Concomitant]
     Active Substance: ACETAMINOPHEN\OXYCODONE\OXYCODONE HYDROCHLORIDE
     Indication: PRODUCT USED FOR UNKNOWN INDICATION
     Dosage: UNK, OTHER (7.5-500 MG)
     Route: 048
     Dates: end: 20120118
  22. DIPHENHYDRAMINE HYDROCHLORIDE. [Concomitant]
     Active Substance: DIPHENHYDRAMINE HYDROCHLORIDE
     Indication: PRODUCT USED FOR UNKNOWN INDICATION
     Dosage: 25 MG, UNKNOWN
     Route: 065
     Dates: start: 20110629, end: 20131104

REACTIONS (16)
  - Oedema peripheral [Unknown]
  - Cardiomyopathy [Unknown]
  - Off label use [Unknown]
  - Pleural effusion [Unknown]
  - Inappropriate antidiuretic hormone secretion [Unknown]
  - Malignant neoplasm progression [Unknown]
  - Kidney small [Unknown]
  - Oedema peripheral [Unknown]
  - Lung consolidation [Unknown]
  - Dermatitis [Recovered/Resolved]
  - Anaemia [Unknown]
  - Erythema [Unknown]
  - Pulmonary oedema [Unknown]
  - Blood creatinine increased [Unknown]
  - Nephropathy [Unknown]
  - Cardiac failure congestive [Unknown]

NARRATIVE: CASE EVENT DATE: 20120529
